FAERS Safety Report 10364986 (Version 1)
Quarter: 2014Q3

REPORT INFORMATION
  Report Type: Spontaneous
  Country: US (occurrence: None)
  Receive Date: 20140805
  Receipt Date: 20140805
  Transmission Date: 20150326
  Serious: Yes (Other)
  Sender: FDA-Public Use
  Company Number: None

PATIENT
  Age: 58 Year
  Sex: Female

DRUGS (2)
  1. SOVALDI [Suspect]
     Active Substance: SOFOSBUVIR
     Indication: HEPATITIS C
     Dosage: 1  TAB
     Route: 048
     Dates: start: 20140512
  2. RIBASPHERE RIBAPAK [Concomitant]
     Active Substance: RIBAVIRIN

REACTIONS (2)
  - Pneumonia [None]
  - Fatigue [None]

NARRATIVE: CASE EVENT DATE: 20140708
